FAERS Safety Report 4408827-7 (Version None)
Quarter: 2004Q3

REPORT INFORMATION
  Report Type: 
  Country: None (occurrence: None)
  Receive Date: 20040727
  Receipt Date: 20040719
  Transmission Date: 20050211
  Serious: Yes (Other)
  Sender: FDA-Public Use
  Company Number: US-ROCHE-374656

PATIENT
  Age: 53 Year
  Sex: Female

DRUGS (3)
  1. PEGASYS [Suspect]
     Indication: HEPATITIS C
     Dosage: FORM REPORTED AS INJECTABLE POWDER.
     Route: 058
     Dates: start: 20031108, end: 20040515
  2. COPEGUS [Suspect]
     Indication: HEPATITIS C
     Route: 048
     Dates: start: 20031108, end: 20040515
  3. CLIMARA [Concomitant]
     Route: 062

REACTIONS (1)
  - VARICES OESOPHAGEAL [None]
